FAERS Safety Report 13943802 (Version 1)
Quarter: 2017Q3

REPORT INFORMATION
  Report Type: Spontaneous
  Country: US (occurrence: US)
  Receive Date: 20170907
  Receipt Date: 20170907
  Transmission Date: 20171128
  Serious: Yes (Other)
  Sender: FDA-Public Use
  Company Number: US-ROCHE-1450161

PATIENT
  Age: 69 Year
  Sex: Female

DRUGS (1)
  1. RITUXAN [Suspect]
     Active Substance: RITUXIMAB
     Indication: PRODUCT USED FOR UNKNOWN INDICATION
     Dosage: 1000MG FOR 2 WEEKS EVERY 6 MONTHS
     Route: 065
     Dates: start: 2009

REACTIONS (2)
  - Oxygen saturation decreased [Unknown]
  - Cryptococcosis [Unknown]

NARRATIVE: CASE EVENT DATE: 201407
